FAERS Safety Report 22331230 (Version 1)
Quarter: 2023Q2

REPORT INFORMATION
  Report Type: Spontaneous
  Country: TW (occurrence: TW)
  Receive Date: 20230517
  Receipt Date: 20230517
  Transmission Date: 20230721
  Serious: Yes (Death, Hospitalization, Other)
  Sender: FDA-Public Use
  Company Number: TW-Accord-358038

PATIENT
  Sex: Female

DRUGS (2)
  1. FINGOLIMOD [Suspect]
     Active Substance: FINGOLIMOD
     Indication: Relapsing-remitting multiple sclerosis
     Dosage: 0.5 MG/DAY
     Route: 048
     Dates: start: 2012, end: 2021
  2. METHYLPREDNISOLONE [Concomitant]
     Active Substance: METHYLPREDNISOLONE
     Indication: Optic neuritis
     Dosage: 0.75 GRAM X 4, RECEIVED 1 GRAM PER DAY X 5 FROM SEP-2019
     Dates: start: 201307

REACTIONS (5)
  - Drug withdrawal syndrome [Fatal]
  - Neuromyelitis optica spectrum disorder [Fatal]
  - Altered state of consciousness [Fatal]
  - Coma [Fatal]
  - Acute respiratory failure [Fatal]

NARRATIVE: CASE EVENT DATE: 20210901
